FAERS Safety Report 11188744 (Version 1)
Quarter: 2015Q2

REPORT INFORMATION
  Report Type: Spontaneous
  Country: US (occurrence: None)
  Receive Date: 20150612
  Receipt Date: 20150612
  Transmission Date: 20150821
  Serious: Yes (Hospitalization)
  Sender: FDA-Public Use
  Company Number: None

PATIENT
  Age: 62 Year
  Sex: Female
  Weight: 97.5 kg

DRUGS (2)
  1. ETOPOSIDE (VP-16) [Suspect]
     Active Substance: ETOPOSIDE
     Dates: end: 20150505
  2. CISPLATIN. [Suspect]
     Active Substance: CISPLATIN
     Dates: end: 20150505

REACTIONS (4)
  - Neutrophil count decreased [None]
  - Pseudomonas test positive [None]
  - Infection [None]
  - Staphylococcus test positive [None]

NARRATIVE: CASE EVENT DATE: 20150517
